FAERS Safety Report 5476708-6 (Version None)
Quarter: 2007Q4

REPORT INFORMATION
  Report Type: 
  Country: None (occurrence: None)
  Receive Date: 20071004
  Receipt Date: 20070809
  Transmission Date: 20080405
  Serious: No
  Sender: FDA-Public Use
  Company Number: A0669195A

PATIENT
  Age: 83 Year
  Sex: Male

DRUGS (7)
  1. ADVAIR DISKUS 100/50 [Suspect]
     Indication: CHRONIC OBSTRUCTIVE PULMONARY DISEASE
     Route: 055
     Dates: start: 20070601
  2. LIPITOR [Concomitant]
  3. ISORDIL [Concomitant]
  4. COUMADIN [Concomitant]
  5. TOPRAL [Concomitant]
  6. ALBUTEROL [Concomitant]
  7. IRON SUPPLEMENT [Concomitant]

REACTIONS (1)
  - MOUTH HAEMORRHAGE [None]
